FAERS Safety Report 8215353-6 (Version None)
Quarter: 2012Q1

REPORT INFORMATION
  Report Type: 
  Country: None (occurrence: None)
  Receive Date: 20120316
  Receipt Date: 20120306
  Transmission Date: 20120608
  Serious: Yes (Other)
  Sender: FDA-Public Use
  Company Number: JP-PFIZER INC-2012055256

PATIENT
  Age: 40 Year
  Sex: Male

DRUGS (7)
  1. LIPITOR [Suspect]
     Dosage: 10 MG, 1X/DAY
     Route: 048
     Dates: start: 20120202, end: 20120221
  2. PLAVIX [Suspect]
     Dosage: 75 MG, 1X/DAY
     Route: 048
     Dates: start: 20120202
  3. ASPIRIN [Suspect]
     Dosage: 100 MG, 1X/DAY
     Route: 048
     Dates: start: 20120202, end: 20120221
  4. CANDESARTAN CILEXETIL [Suspect]
     Dosage: 8 MG, 1X/DAY
     Route: 048
     Dates: start: 20120202, end: 20120221
  5. LANSOPRAZOLE [Suspect]
     Dosage: 15 MG, 1X/DAY
     Route: 048
     Dates: start: 20120202, end: 20120221
  6. CARVEDILOL [Suspect]
     Dosage: 5 MG, 1X/DAY
     Route: 048
     Dates: start: 20120215, end: 20120221
  7. SIGMART [Suspect]
     Dosage: 15 MG, 1X/DAY
     Route: 048
     Dates: start: 20120202, end: 20120221

REACTIONS (1)
  - RASH ERYTHEMATOUS [None]
